FAERS Safety Report 5749527-0 (Version None)
Quarter: 2008Q2

REPORT INFORMATION
  Report Type: 
  Country: None (occurrence: None)
  Receive Date: 20080527
  Receipt Date: 20080519
  Transmission Date: 20081010
  Serious: Yes (Hospitalization, Other)
  Sender: FDA-Public Use
  Company Number: B0521924A

PATIENT
  Age: 76 Year
  Sex: Female
  Weight: 73 kg

DRUGS (7)
  1. ARIXTRA [Suspect]
     Dosage: 2.5MG PER DAY
     Route: 058
     Dates: start: 20060330, end: 20060504
  2. CACIT VIT D3 [Concomitant]
     Route: 065
  3. LAMALINE [Concomitant]
     Route: 065
  4. STEROGYL [Concomitant]
     Route: 065
  5. DIOSMIL [Concomitant]
     Route: 065
  6. FOSAMAX [Concomitant]
     Route: 065
  7. ANALGESIA [Concomitant]
     Indication: PAIN PROPHYLAXIS
     Route: 065

REACTIONS (5)
  - HAEMOGLOBIN DECREASED [None]
  - INCISION SITE HAEMORRHAGE [None]
  - INTENTIONAL DRUG MISUSE [None]
  - LUNG INFECTION [None]
  - THROMBOSIS [None]
